FAERS Safety Report 9163070 (Version 1)
Quarter: 2013Q1

REPORT INFORMATION
  Report Type: Spontaneous
  Country: US (occurrence: None)
  Receive Date: 20130313
  Receipt Date: 20130313
  Transmission Date: 20140127
  Serious: Yes (Other)
  Sender: FDA-Public Use
  Company Number: None

PATIENT
  Age: 63 Year
  Sex: Male

DRUGS (2)
  1. FENOFIBRATE [Suspect]
     Dates: start: 20121126, end: 201212
  2. HYDROCHLOROTHIAZIDE [Suspect]

REACTIONS (3)
  - Rash [None]
  - Rash [None]
  - Product quality issue [None]
